FAERS Safety Report 4854901-0 (Version None)
Quarter: 2005Q4

REPORT INFORMATION
  Report Type: 
  Country: None (occurrence: None)
  Receive Date: 20051213
  Receipt Date: 20051130
  Transmission Date: 20060501
  Serious: Yes (Hospitalization, Other)
  Sender: FDA-Public Use
  Company Number: 2005121263

PATIENT
  Age: 45 Year
  Sex: Male

DRUGS (4)
  1. LIPITOR [Suspect]
     Indication: HYPERLIPIDAEMIA
     Dosage: 5 MG (1 IN 1 D), ORAL
     Route: 048
  2. SEVOFLURANE [Suspect]
     Indication: GLOSSECTOMY
     Dosage: 40 ML (1 IN 1 D), TRANSDERMAL
     Route: 062
     Dates: start: 20050106, end: 20050106
  3. DIPRIVAN [Suspect]
     Indication: GLOSSECTOMY
     Dosage: 160 MG (1 IN 1 D), INTRAVENOUS
     Route: 042
     Dates: start: 20050106, end: 20050106
  4. SUCCIN (SUXAMETHONIUM CHLORIDE) [Suspect]
     Indication: GLOSSECTOMY
     Dosage: 60 MG (1 IN 1 D), INTRAVENOUS
     Route: 042
     Dates: start: 20050106, end: 20050106

REACTIONS (10)
  - ALANINE AMINOTRANSFERASE INCREASED [None]
  - ASPARTATE AMINOTRANSFERASE INCREASED [None]
  - BLOOD LACTATE DEHYDROGENASE INCREASED [None]
  - HAEMATURIA [None]
  - HYPOAESTHESIA [None]
  - POST PROCEDURAL COMPLICATION [None]
  - PROTEIN URINE PRESENT [None]
  - RHABDOMYOLYSIS [None]
  - TONGUE NEOPLASM [None]
  - WHITE BLOOD CELL COUNT INCREASED [None]
